FAERS Safety Report 6126245-0 (Version None)
Quarter: 2009Q1

REPORT INFORMATION
  Report Type: 
  Country: None (occurrence: None)
  Receive Date: 20090320
  Receipt Date: 20090316
  Transmission Date: 20090719
  Serious: Yes (Hospitalization)
  Sender: FDA-Public Use
  Company Number: US-JNJFOC-20090304296

PATIENT
  Sex: Female
  Weight: 140.62 kg

DRUGS (7)
  1. DURAGESIC-100 [Suspect]
     Route: 062
  2. DURAGESIC-100 [Suspect]
     Route: 062
  3. DURAGESIC-100 [Suspect]
     Indication: BACK PAIN
     Dosage: 100 UG/HR AND 25 UG/HR
     Route: 062
  4. FENTANYL TRANSDERMAL SYSTEM [Suspect]
     Indication: BACK PAIN
     Route: 062
  5. COZAAR [Concomitant]
     Indication: HYPERTENSION
     Route: 048
  6. ADVIL [Concomitant]
     Indication: PAIN
     Route: 048
  7. FLEXERIL [Concomitant]
     Indication: MUSCLE SPASMS
     Route: 048

REACTIONS (9)
  - BACK PAIN [None]
  - GASTRIC DISORDER [None]
  - INFECTED SKIN ULCER [None]
  - INSOMNIA [None]
  - PERONEAL NERVE PALSY POSTOPERATIVE [None]
  - PSORIASIS [None]
  - URINARY INCONTINENCE [None]
  - WITHDRAWAL SYNDROME [None]
  - WRONG TECHNIQUE IN DRUG USAGE PROCESS [None]
